FAERS Safety Report 25088806 (Version 3)
Quarter: 2025Q4

REPORT INFORMATION
  Report Type: Report from Study
  Country: US (occurrence: US)
  Receive Date: 20250318
  Receipt Date: 20251007
  Transmission Date: 20260117
  Serious: No
  Sender: SANDOZ
  Company Number: US-SANDOZ-SDZ2025US015825

PATIENT
  Age: 10 Year
  Sex: Male

DRUGS (4)
  1. OMNITROPE [Suspect]
     Active Substance: SOMATROPIN
     Indication: Short stature
     Dosage: 1.2 MG, 6 DAYS A WEEK
     Route: 058
     Dates: start: 20250421, end: 20250602
  2. OMNITROPE [Suspect]
     Active Substance: SOMATROPIN
     Indication: Short stature
     Dosage: 1.2 MG, 6 DAYS A WEEK
     Route: 058
     Dates: start: 20250421, end: 20250602
  3. OMNITROPE [Suspect]
     Active Substance: SOMATROPIN
     Indication: Hypopituitarism
     Dosage: 1.2 MG 6 DAYS A WEEK
     Route: 058
     Dates: start: 20250307, end: 20250312
  4. OMNITROPE [Suspect]
     Active Substance: SOMATROPIN
     Indication: Hypopituitarism
     Dosage: 1.2 MG 6 DAYS A WEEK
     Route: 058
     Dates: start: 20250307, end: 20250312

REACTIONS (5)
  - Incorrect dose administered by device [Unknown]
  - Needle issue [Unknown]
  - Product dose omission issue [Unknown]
  - Circumstance or information capable of leading to medication error [Unknown]
  - Device breakage [Unknown]

NARRATIVE: CASE EVENT DATE: 20250307
